FAERS Safety Report 14069188 (Version 1)
Quarter: 2017Q4

REPORT INFORMATION
  Report Type: Spontaneous
  Country: US (occurrence: US)
  Receive Date: 20171010
  Receipt Date: 20171010
  Transmission Date: 20180321
  Serious: No
  Sender: FDA-Public Use
  Company Number: US-ELI_LILLY_AND_COMPANY-US201710002621

PATIENT
  Age: 29 Year
  Sex: Female

DRUGS (1)
  1. PROZAC [Suspect]
     Active Substance: FLUOXETINE HYDROCHLORIDE
     Indication: ANXIETY
     Dosage: 20 MG, DAILY
     Route: 065

REACTIONS (7)
  - Fungal infection [Unknown]
  - Off label use [Unknown]
  - Haematochezia [Unknown]
  - Epistaxis [Unknown]
  - Depression [Unknown]
  - Pulmonary congestion [Unknown]
  - Eczema [Unknown]

NARRATIVE: CASE EVENT DATE: 20021017
